FAERS Safety Report 13502881 (Version 3)
Quarter: 2017Q2

REPORT INFORMATION
  Report Type: Report from Study
  Country: GB (occurrence: GB)
  Receive Date: 20170502
  Receipt Date: 20170515
  Transmission Date: 20170912
  Serious: No
  Sender: FDA-Public Use
  Company Number: GB-JNJFOC-20170425867

PATIENT
  Sex: Male

DRUGS (8)
  1. FRAGMIN [Concomitant]
     Indication: EMBOLISM VENOUS
     Route: 064
     Dates: start: 20170204, end: 20170308
  2. ENTONOX [Concomitant]
     Active Substance: NITROUS OXIDE\OXYGEN
     Indication: ANALGESIC THERAPY
     Route: 064
     Dates: start: 20170218, end: 20170218
  3. BEROCCA [Concomitant]
     Active Substance: VITAMINS
     Route: 064
  4. AMOXICILLIN [Concomitant]
     Route: 064
  5. FRAGMIN [Concomitant]
     Indication: EMBOLISM VENOUS
     Route: 064
     Dates: start: 20160824
  6. SODIUM VALPROATE [Concomitant]
     Active Substance: VALPROATE SODIUM
     Indication: EPILEPSY
     Route: 064
     Dates: start: 20031217
  7. USTEKINUMAB [Suspect]
     Active Substance: USTEKINUMAB
     Route: 064
  8. AZATHIOPRINE [Suspect]
     Indication: CROHN^S DISEASE
     Route: 064
     Dates: start: 20100507

REACTIONS (1)
  - Foetal exposure during pregnancy [Recovered/Resolved]
